FAERS Safety Report 7111018-2 (Version None)
Quarter: 2010Q4

REPORT INFORMATION
  Report Type: 
  Country: None (occurrence: None)
  Receive Date: 20101118
  Receipt Date: 20101116
  Transmission Date: 20110411
  Serious: Yes (Hospitalization, Other)
  Sender: FDA-Public Use
  Company Number: US-MERCK-1009USA04873

PATIENT
  Age: 51 Year
  Sex: Male
  Weight: 86 kg

DRUGS (19)
  1. JANUVIA [Suspect]
     Indication: DIABETES MELLITUS
     Route: 048
     Dates: start: 20081014, end: 20100601
  2. PROGRAF [Concomitant]
     Route: 065
  3. CELLCEPT [Concomitant]
     Route: 065
     Dates: end: 20100904
  4. PREDNISONE [Concomitant]
     Route: 065
  5. FOLIC ACID [Concomitant]
     Route: 065
  6. BACTRIM [Concomitant]
     Route: 065
  7. PRILOSEC [Suspect]
     Route: 065
  8. ACTIGALL [Concomitant]
     Route: 065
  9. PENTASA [Concomitant]
     Route: 065
  10. AMARYL [Concomitant]
     Route: 065
  11. CYANOCOBALAMIN [Concomitant]
     Route: 048
  12. CALCIUM (UNSPECIFIED) AND VITAMIN D (UNSPECIFIED) [Concomitant]
     Route: 048
  13. VITAMIN D (UNSPECIFIED) [Concomitant]
     Route: 065
  14. FOSAMAX [Suspect]
     Route: 048
     Dates: start: 20070701
  15. ZOCOR [Suspect]
     Route: 048
  16. MAGNESIUM OXIDE [Concomitant]
     Route: 065
  17. FLUCONAZOLE [Concomitant]
     Route: 065
  18. NOVOLOG [Concomitant]
     Route: 065
  19. COUMADIN [Concomitant]
     Route: 065

REACTIONS (6)
  - DEEP VEIN THROMBOSIS [None]
  - HEPATIC MASS [None]
  - PULMONARY EMBOLISM [None]
  - PULMONARY MASS [None]
  - SECONDARY ADRENOCORTICAL INSUFFICIENCY [None]
  - THROMBOCYTOPENIA [None]
